FAERS Safety Report 5225616-4 (Version None)
Quarter: 2007Q1

REPORT INFORMATION
  Report Type: 
  Country: None (occurrence: None)
  Receive Date: 20061201
  Receipt Date: 20060911
  Transmission Date: 20070707
  Serious: No
  Sender: FDA-Public Use
  Company Number: US200609002825

PATIENT
  Age: 46 Year
  Sex: Female

DRUGS (6)
  1. CYMBALTA [Suspect]
     Indication: MAJOR DEPRESSION
     Dosage: SEE IMAGE
     Dates: start: 20060101, end: 20060101
  2. CYMBALTA [Suspect]
     Indication: MAJOR DEPRESSION
     Dosage: SEE IMAGE
     Dates: start: 20060725, end: 20060731
  3. CYMBALTA [Suspect]
     Indication: MAJOR DEPRESSION
     Dosage: SEE IMAGE
     Dates: start: 20060101
  4. KLONOPIN [Concomitant]
  5. MAXZIDE [Concomitant]
  6. ADDERALL XR (AMFETAMINE ASPARTATE, AMFETAMINE SULFATE, DEXAMFETAMINE S [Concomitant]

REACTIONS (13)
  - ACNE [None]
  - ECZEMA [None]
  - HYPERHIDROSIS [None]
  - HYPERTONIC BLADDER [None]
  - INSOMNIA [None]
  - POLLAKIURIA [None]
  - PRURITUS [None]
  - RASH [None]
  - SCAB [None]
  - SKIN ULCER [None]
  - URINARY INCONTINENCE [None]
  - URTICARIA [None]
  - VISION BLURRED [None]
